FAERS Safety Report 6035800-8 (Version None)
Quarter: 2009Q1

REPORT INFORMATION
  Report Type: 
  Country: None (occurrence: None)
  Receive Date: 20090113
  Receipt Date: 20090109
  Transmission Date: 20090719
  Serious: Yes (Other)
  Sender: FDA-Public Use
  Company Number: PT-BRISTOL-MYERS SQUIBB COMPANY-14464325

PATIENT
  Age: 33 Year
  Sex: Male
  Weight: 69 kg

DRUGS (5)
  1. VIDEX [Interacting]
     Dosage: 1 DF= DIDANOSINE 250, 1 TABLET/DAY
     Dates: start: 20020601
  2. RIBAVIRIN [Interacting]
     Dates: start: 20040906, end: 20050714
  3. PEGINTERFERON ALFA-2A [Interacting]
     Dates: start: 20040906, end: 20050714
  4. VIREAD [Suspect]
     Dates: start: 20020601
  5. VIRAMUNE [Suspect]
     Dates: start: 20020601

REACTIONS (2)
  - DRUG INTERACTION [None]
  - VOMITING [None]
